FAERS Safety Report 18695849 (Version 1)
Quarter: 2021Q1

REPORT INFORMATION
  Report Type: Spontaneous
  Country: US (occurrence: US)
  Receive Date: 20210104
  Receipt Date: 20210104
  Transmission Date: 20210419
  Serious: Yes (Death, Hospitalization, Other)
  Sender: FDA-Public Use
  Company Number: US-JNJFOC-20201248184

PATIENT
  Age: 54 Year
  Sex: Female

DRUGS (3)
  1. DESMOPRESSIN [Concomitant]
     Active Substance: DESMOPRESSIN
  2. VELETRI [Suspect]
     Active Substance: EPOPROSTENOL
     Indication: COVID-19
     Route: 065
  3. ASPRIN [Concomitant]
     Active Substance: ASPIRIN

REACTIONS (5)
  - Thrombocytopenia [Unknown]
  - Product use in unapproved indication [Unknown]
  - Subarachnoid haemorrhage [Fatal]
  - Brain death [Fatal]
  - Off label use [Unknown]
